FAERS Safety Report 20745919 (Version 1)
Quarter: 2022Q2

REPORT INFORMATION
  Report Type: Spontaneous
  Country: US (occurrence: None)
  Receive Date: 20220425
  Receipt Date: 20220425
  Transmission Date: 20220721
  Serious: Yes (Hospitalization, Other)
  Sender: FDA-Public Use
  Company Number: US-MDD US Operations-MDD202204-000841

PATIENT
  Age: 43 Year
  Sex: Male

DRUGS (3)
  1. APOKYN [Suspect]
     Active Substance: APOMORPHINE HYDROCHLORIDE
     Indication: Product used for unknown indication
     Route: 058
     Dates: end: 202203
  2. SINEMET [Concomitant]
     Active Substance: CARBIDOPA\LEVODOPA
     Dosage: 25/100
  3. DOMPERIDONE [Concomitant]
     Active Substance: DOMPERIDONE
     Dosage: NOT PROVIDED

REACTIONS (3)
  - Road traffic accident [Unknown]
  - Spinal fracture [Unknown]
  - Pulmonary haemorrhage [Unknown]

NARRATIVE: CASE EVENT DATE: 20220329
